FAERS Safety Report 13603010 (Version 1)
Quarter: 2017Q2

REPORT INFORMATION
  Report Type: Report from Study
  Country: ZA (occurrence: ZA)
  Receive Date: 20170601
  Receipt Date: 20170601
  Transmission Date: 20170830
  Serious: Yes (Death)
  Sender: FDA-Public Use
  Company Number: PHHY2017ZA080882

PATIENT
  Sex: Female

DRUGS (1)
  1. CO-MIGROBEN [Suspect]
     Active Substance: HYDROCHLOROTHIAZIDE\VALSARTAN
     Indication: HYPERTENSION
     Dosage: 1 DF (HYDROCHLOROTHIAZIDE 12.5MG AND VALSARTAN 80MG), UNK
     Route: 048
     Dates: start: 20161201

REACTIONS (1)
  - Death [Fatal]
